FAERS Safety Report 22300726 (Version 1)
Quarter: 2023Q2

REPORT INFORMATION
  Report Type: Spontaneous
  Country: US (occurrence: US)
  Receive Date: 20230509
  Receipt Date: 20230509
  Transmission Date: 20230721
  Serious: No
  Sender: FDA-Public Use
  Company Number: US-SA-SAC20230502000147

PATIENT
  Sex: Male

DRUGS (9)
  1. DUPIXENT [Suspect]
     Active Substance: DUPILUMAB
     Indication: Asthma
     Dosage: 1PEN; QOW
     Route: 058
     Dates: start: 20211207
  2. ALBUTEROL SULFATE [Concomitant]
     Active Substance: ALBUTEROL SULFATE
  3. EPINEPHRINE [Concomitant]
     Active Substance: EPINEPHRINE
  4. LEVALBUTEROL [Concomitant]
     Active Substance: LEVALBUTEROL
  5. PREDNISONE [Concomitant]
     Active Substance: PREDNISONE
  6. SPIRIVA [Concomitant]
     Active Substance: TIOTROPIUM BROMIDE MONOHYDRATE
  7. LEVOCETIRIZINE DIHYDROCHLORIDE [Concomitant]
     Active Substance: LEVOCETIRIZINE DIHYDROCHLORIDE
  8. ALBUTEROL [Concomitant]
     Active Substance: ALBUTEROL
  9. RESCUE [Concomitant]
     Dosage: COUPLE TIMES PER DAY

REACTIONS (2)
  - Impaired quality of life [Unknown]
  - Drug ineffective [Unknown]
